FAERS Safety Report 11950322 (Version 1)
Quarter: 2016Q1

REPORT INFORMATION
  Report Type: Spontaneous
  Country: US (occurrence: None)
  Receive Date: 20160121
  Receipt Date: 20160121
  Transmission Date: 20160526
  Serious: Yes (Other)
  Sender: FDA-Public Use
  Company Number: None

PATIENT
  Age: 53 Year
  Sex: Male
  Weight: 83.92 kg

DRUGS (8)
  1. DULOXETINE 30 MG ELI LILLY [Suspect]
     Active Substance: DULOXETINE
     Indication: ANXIETY
     Dosage: 1 PILL ONCE DAILY TAKEN BY MOUTH
     Dates: start: 20150401, end: 20160120
  2. LISINOPRIL. [Concomitant]
     Active Substance: LISINOPRIL
  3. ATORVASTATIN [Concomitant]
     Active Substance: ATORVASTATIN
  4. BUPROPION HCL [Concomitant]
     Active Substance: BUPROPION HYDROCHLORIDE
  5. DULOXETINE 30 MG ELI LILLY [Suspect]
     Active Substance: DULOXETINE
     Indication: DEPRESSION
     Dosage: 1 PILL ONCE DAILY TAKEN BY MOUTH
     Dates: start: 20150401, end: 20160120
  6. VITAMIN D [Concomitant]
     Active Substance: CHOLECALCIFEROL
  7. ADVAIR HFA [Concomitant]
     Active Substance: FLUTICASONE PROPIONATE\SALMETEROL XINAFOATE
  8. VITAMIN B [Concomitant]
     Active Substance: VITAMIN B

REACTIONS (6)
  - Mania [None]
  - Gastric disorder [None]
  - Tachycardia [None]
  - Body temperature increased [None]
  - Irritability [None]
  - Impulsive behaviour [None]

NARRATIVE: CASE EVENT DATE: 20160101
